FAERS Safety Report 5146625-X (Version None)
Quarter: 2006Q4

REPORT INFORMATION
  Report Type: 
  Country: None (occurrence: None)
  Receive Date: 20061109
  Receipt Date: 20061026
  Transmission Date: 20070319
  Serious: Yes (Hospitalization)
  Sender: FDA-Public Use
  Company Number: PHRM2006FR02930

PATIENT
  Age: 68 Year
  Sex: Female

DRUGS (4)
  1. VANCOMYCIN [Suspect]
     Route: 042
     Dates: start: 20060907, end: 20060927
  2. CIFLOX [Concomitant]
     Route: 048
     Dates: start: 20060504, end: 20060930
  3. FORTUM /NET/ [Concomitant]
     Route: 042
     Dates: start: 20060504, end: 20060927
  4. TRILEPTAL [Suspect]
     Dosage: 600 MG/DAY
     Route: 048
     Dates: start: 20060906, end: 20060926

REACTIONS (6)
  - DIALYSIS [None]
  - EOSINOPHILIA [None]
  - RASH MACULO-PAPULAR [None]
  - RENAL FAILURE ACUTE [None]
  - RENAL TUBULAR NECROSIS [None]
  - SEPTIC SHOCK [None]
